FAERS Safety Report 20373378 (Version 1)
Quarter: 2022Q1

REPORT INFORMATION
  Report Type: Spontaneous
  Country: US (occurrence: US)
  Receive Date: 20220125
  Receipt Date: 20220125
  Transmission Date: 20220423
  Serious: No
  Sender: FDA-Public Use
  Company Number: US-HISAMITSU PHARMACEUTICAL CO., INC.-2021-NOV-US004058

PATIENT
  Sex: Male

DRUGS (3)
  1. SECUADO [Suspect]
     Active Substance: ASENAPINE
     Indication: Obsessive-compulsive disorder
     Dosage: 5.7 (UNITS UNSPECIFIED), UNK
     Route: 062
  2. SECUADO [Suspect]
     Active Substance: ASENAPINE
     Indication: Depression
     Dosage: 3.8 (UNITS UNSPECIFIED), UNK
     Route: 062
  3. SECUADO [Suspect]
     Active Substance: ASENAPINE
     Indication: Bipolar disorder

REACTIONS (4)
  - Application site rash [Not Recovered/Not Resolved]
  - Skin irritation [Not Recovered/Not Resolved]
  - Product residue present [Not Recovered/Not Resolved]
  - Product quality issue [Not Recovered/Not Resolved]
